FAERS Safety Report 7059318-9 (Version None)
Quarter: 2010Q4

REPORT INFORMATION
  Report Type: 
  Country: None (occurrence: None)
  Receive Date: 20101025
  Receipt Date: 20101018
  Transmission Date: 20110411
  Serious: No
  Sender: FDA-Public Use
  Company Number: US-BIOGENIDEC-2010BI035848

PATIENT
  Age: 66 Year
  Sex: Female

DRUGS (1)
  1. AVONEX [Suspect]
     Indication: MULTIPLE SCLEROSIS
     Route: 030
     Dates: start: 20100924

REACTIONS (7)
  - DRY SKIN [None]
  - DYSGEUSIA [None]
  - FEELING HOT [None]
  - INFLUENZA LIKE ILLNESS [None]
  - PRURITUS [None]
  - SENSATION OF HEAVINESS [None]
  - URINARY INCONTINENCE [None]
